FAERS Safety Report 8014113-9 (Version None)
Quarter: 2011Q4

REPORT INFORMATION
  Report Type: 
  Country: None (occurrence: None)
  Receive Date: 20111223
  Receipt Date: 20111213
  Transmission Date: 20120403
  Serious: Yes (Other)
  Sender: FDA-Public Use
  Company Number: AUR-APL-2011-06223

PATIENT
  Sex: Female

DRUGS (8)
  1. MELOXICAM [Suspect]
     Indication: JUVENILE ARTHRITIS
     Dosage: 15 MG (15 MG, 1 IN 1 D), ORAL
     Route: 048
  2. HYDROXYCHLOROQUINE PHOSPHATE (HYDROXYCHLOROQUINE PHOSPHATE) [Suspect]
     Indication: JUVENILE ARTHRITIS
     Dosage: 200 MG (200 MG, 1 IN 1 D), ORAL
     Route: 048
  3. METHYLPREDNISOLONE SODIUM SUCCINATE (METHYLPREDNISOLONE SODIUM SUCCINA [Suspect]
     Indication: JUVENILE ARTHRITIS
     Dosage: 3.5714 MG (100 MG, 1 IN 4 WK), INTRAVENOUS
     Route: 042
  4. IMMUNOGLOBULIN G HUMAN (IMMUNOGLOBULIN G HUMAN) [Concomitant]
  5. INFLIXIMAB (INFLIXIMAB) [Suspect]
     Indication: JUVENILE ARTHRITIS
     Dosage: 14.2857 MG (400 MG, 1 IN 4 WK), INTRAVENOUS
     Route: 042
  6. ALBUTEROL [Concomitant]
  7. RITUXIMAB (RITUXIMAB) [Suspect]
     Indication: JUVENILE ARTHRITIS
     Dosage: (1000 MG)
     Dates: start: 20100521
  8. ACYCLOVIR [Concomitant]

REACTIONS (3)
  - PULMONARY MYCOSIS [None]
  - RESTRICTIVE PULMONARY DISEASE [None]
  - COCCIDIOIDOMYCOSIS [None]
